FAERS Safety Report 5346397-X (Version None)
Quarter: 2007Q2

REPORT INFORMATION
  Report Type: 
  Country: None (occurrence: None)
  Receive Date: 20070605
  Receipt Date: 20070525
  Transmission Date: 20071010
  Serious: Yes (Other)
  Sender: FDA-Public Use
  Company Number: FR-PFIZER INC-2007042870

PATIENT
  Age: 54 Year
  Sex: Female

DRUGS (3)
  1. CHAMPIX [Suspect]
     Indication: EX-SMOKER
  2. EFFEXOR [Concomitant]
     Indication: DEPRESSION
  3. LYSANXIA [Concomitant]

REACTIONS (1)
  - ECCHYMOSIS [None]
